FAERS Safety Report 20336233 (Version 1)
Quarter: 2022Q1

REPORT INFORMATION
  Report Type: Spontaneous
  Country: US (occurrence: None)
  Receive Date: 20220114
  Receipt Date: 20220114
  Transmission Date: 20220423
  Serious: Yes (Life-Threatening, Hospitalization, Other)
  Sender: FDA-Public Use
  Company Number: None

PATIENT
  Age: 58 Year
  Sex: Female
  Weight: 75.6 kg

DRUGS (13)
  1. ENBREL [Suspect]
     Active Substance: ETANERCEPT
     Indication: Psoriatic arthropathy
     Dosage: OTHER FREQUENCY : WEEKLY;?
     Route: 058
  2. Benicar 40 mg [Concomitant]
  3. Demadex 20 mg [Concomitant]
  4. FENOFIBRATE [Concomitant]
     Active Substance: FENOFIBRATE
  5. LORATADINE [Concomitant]
     Active Substance: LORATADINE
  6. melatonin 3 mg [Concomitant]
  7. METFORMIN [Concomitant]
     Active Substance: METFORMIN HYDROCHLORIDE
  8. METOPROLOL TARTRATE [Concomitant]
     Active Substance: METOPROLOL TARTRATE
  9. pioglitazone 45 mg [Concomitant]
  10. PREDNISONE [Concomitant]
     Active Substance: PREDNISONE
  11. SIMVASTATIN [Concomitant]
     Active Substance: SIMVASTATIN
  12. TRAMADOL [Concomitant]
     Active Substance: TRAMADOL
  13. Tylenol Extra Strength 500 mg prn [Concomitant]

REACTIONS (4)
  - Back pain [None]
  - Gastrointestinal infection [None]
  - Sepsis [None]
  - Pain [None]

NARRATIVE: CASE EVENT DATE: 20210620
